FAERS Safety Report 7149117-1 (Version None)
Quarter: 2010Q4

REPORT INFORMATION
  Report Type: 
  Country: None (occurrence: None)
  Receive Date: 20101124
  Receipt Date: 20101111
  Transmission Date: 20110411
  Serious: Yes (Death)
  Sender: FDA-Public Use
  Company Number: AUR-APL-2010-02828

PATIENT
  Age: 52 Year

DRUGS (11)
  1. AMOXICILLIN [Suspect]
  2. FLUOXETINE [Suspect]
  3. DOXEPIN (CAPS) [Suspect]
  4. FENTANYL [Suspect]
  5. PREGABALIN [Suspect]
  6. ATORVASTATIN [Suspect]
  7. BUPROPION [Suspect]
  8. METHOCARBAMOL [Suspect]
  9. OXYCODONE [Suspect]
  10. TIZANIDINE [Suspect]
  11. IBUPROFEN [Suspect]

REACTIONS (4)
  - CARDIAC ARREST [None]
  - COMPLETED SUICIDE [None]
  - ELECTROCARDIOGRAM QT PROLONGED [None]
  - POISONING [None]
